FAERS Safety Report 5691851 (Version 3)
Quarter: 2017Q1

REPORT INFORMATION
  Report Type: Spontaneous
  Country: JP (occurrence: JP)
  Receive Date: 20041209
  Receipt Date: 20170207
  Transmission Date: 20170429
  Serious: Yes (Life-Threatening, Hospitalization, Disabling, Other)
  Sender: FDA-Public Use
  Company Number: JP-BRISTOL-MYERS SQUIBB COMPANY-12784161

PATIENT
  Age: 19 Year
  Sex: Male

DRUGS (6)
  1. ADRIACIN [Suspect]
     Active Substance: DOXORUBICIN HYDROCHLORIDE
     Indication: BONE SARCOMA
     Dosage: 68 MG, UNK
     Route: 042
     Dates: start: 20011227, end: 20020418
  2. RANDA [Suspect]
     Active Substance: CISPLATIN
     Indication: BONE SARCOMA
     Dosage: 170 MG, UNK
     Route: 042
     Dates: start: 20011226, end: 20020903
  3. THERARUBICIN [Suspect]
     Active Substance: PIRARUBICIN HYDROCHLORIDE
     Indication: BONE SARCOMA
     Dosage: 68 MG, UNK
     Route: 042
     Dates: start: 20020625, end: 20020905
  4. IFOSFAMIDE. [Suspect]
     Active Substance: IFOSFAMIDE
     Indication: BONE SARCOMA
     Dosage: 4 G, UNK
     Route: 042
     Dates: start: 20020528, end: 20021019
  5. VEPESID [Suspect]
     Active Substance: ETOPOSIDE
     Indication: BONE SARCOMA
     Dosage: 170 MG, UNK
     Route: 042
     Dates: start: 20011226, end: 20020601
  6. METHOTREXATE. [Suspect]
     Active Substance: METHOTREXATE
     Indication: BONE SARCOMA
     Dosage: 18 G, UNK
     Route: 042
     Dates: start: 20020212, end: 20021001

REACTIONS (1)
  - Acute myeloid leukaemia [Recovered/Resolved]

NARRATIVE: CASE EVENT DATE: 20030715
